FAERS Safety Report 8410513-3 (Version None)
Quarter: 2012Q2

REPORT INFORMATION
  Report Type: 
  Country: None (occurrence: None)
  Receive Date: 20120529
  Receipt Date: 20060106
  Transmission Date: 20120825
  Serious: Yes (Disabling)
  Sender: FDA-Public Use
  Company Number: 15691-USA-06-0066

PATIENT
  Age: 80 Year
  Sex: Female

DRUGS (12)
  1. TOLVAPTAN (TOLVAPTAN(V.4.1)) E0 MG [Suspect]
     Indication: CARDIAC FAILURE CONGESTIVE
     Dosage: 30 MG, QD, ORAL
     Route: 048
     Dates: start: 20051019
  2. CARVEDILOL [Concomitant]
  3. SPIRONOLACTONE [Concomitant]
  4. SIMVASTATIN [Concomitant]
  5. CLOPIDEGREL [Concomitant]
  6. PAXIL [Concomitant]
  7. TORSEMIDE [Concomitant]
  8. LEVAQUIN [Concomitant]
  9. PREVACID [Concomitant]
  10. WARFARIN SODIUM [Concomitant]
  11. IRON-DEXTRAN COMPLEX INJ [Concomitant]
  12. CORDARONE /NET/ (AMIODARONE HYDROCHLORIDE) [Concomitant]

REACTIONS (4)
  - DEHYDRATION [None]
  - URINARY TRACT INFECTION [None]
  - CONDITION AGGRAVATED [None]
  - CARDIAC FAILURE CONGESTIVE [None]
